FAERS Safety Report 16827685 (Version 1)
Quarter: 2019Q3

REPORT INFORMATION
  Report Type: Other
  Country: US (occurrence: IT)
  Receive Date: 20190919
  Receipt Date: 20190919
  Transmission Date: 20191005
  Serious: Yes (Death)
  Sender: FDA-Public Use
  Company Number: IT-ALSI-201900379

PATIENT
  Age: 57 Year
  Sex: Male

DRUGS (3)
  1. OXYGEN. [Suspect]
     Active Substance: OXYGEN
     Indication: OFF LABEL USE
     Route: 024
  2. OXYGEN. [Suspect]
     Active Substance: OXYGEN
     Indication: INTERVERTEBRAL DISC PROTRUSION
     Route: 024
  3. OZONE [Suspect]
     Active Substance: OZONE
     Route: 024

REACTIONS (3)
  - Pneumonia escherichia [Fatal]
  - Off label use [Recovered/Resolved]
  - Escherichia sepsis [Fatal]
